FAERS Safety Report 6278176-3 (Version None)
Quarter: 2009Q3

REPORT INFORMATION
  Report Type: 
  Country: None (occurrence: None)
  Receive Date: 20090722
  Receipt Date: 20090720
  Transmission Date: 20100115
  Serious: Yes (Other)
  Sender: FDA-Public Use
  Company Number: TR-ROXANE LABORATORIES, INC.-2009-RO-00723RO

PATIENT
  Age: 55 Year
  Sex: Female

DRUGS (2)
  1. MIDAZOLAM HCL [Suspect]
     Indication: SEDATIVE THERAPY
     Route: 042
  2. LIDOCAINE [Suspect]
     Indication: LOCAL ANAESTHESIA

REACTIONS (1)
  - PAROTITIS [None]
